FAERS Safety Report 5079960-4 (Version None)
Quarter: 2006Q3

REPORT INFORMATION
  Report Type: 
  Country: None (occurrence: None)
  Receive Date: 20060815
  Receipt Date: 20060524
  Transmission Date: 20061208
  Serious: No
  Sender: FDA-Public Use
  Company Number: US-GLAXOSMITHKLINE-A0606812A

PATIENT
  Age: 42 Year
  Sex: Male

DRUGS (3)
  1. EPZICOM [Suspect]
     Indication: HIV INFECTION
     Dosage: 1TAB PER DAY
     Route: 048
     Dates: start: 20060523, end: 20060524
  2. KALETRA [Concomitant]
  3. ABILIFY [Concomitant]

REACTIONS (3)
  - PYREXIA [None]
  - RASH [None]
  - VOMITING [None]
